FAERS Safety Report 10466338 (Version 1)
Quarter: 2014Q3

REPORT INFORMATION
  Report Type: Spontaneous
  Country: GB (occurrence: GB)
  Receive Date: 20140922
  Receipt Date: 20140922
  Transmission Date: 20150326
  Serious: Yes (Hospitalization)
  Sender: FDA-Public Use
  Company Number: GB-ROCHE-1462430

PATIENT
  Age: 68 Year
  Sex: Female
  Weight: 70 kg

DRUGS (3)
  1. ALENDRONIC ACID [Concomitant]
     Active Substance: ALENDRONIC ACID
     Route: 065
  2. TRASTUZUMAB [Suspect]
     Active Substance: TRASTUZUMAB
     Indication: HER-2 POSITIVE BREAST CANCER
     Dosage: EVERY 3 WEEKS  (UNABLE TO CONFIRM DOSE BUT PROBABLY 8MG/KG LOADING FOLLOWED BY 6MG/KG)
     Route: 065
     Dates: start: 201401, end: 201408
  3. ADCAL - D3 [Concomitant]
     Route: 065

REACTIONS (5)
  - Pleural effusion [Unknown]
  - Dyspnoea [Unknown]
  - Chest discomfort [Unknown]
  - Bundle branch block left [Not Recovered/Not Resolved]
  - Left ventricular dysfunction [Not Recovered/Not Resolved]

NARRATIVE: CASE EVENT DATE: 201408
